FAERS Safety Report 7563265-3 (Version None)
Quarter: 2011Q2

REPORT INFORMATION
  Report Type: 
  Country: None (occurrence: None)
  Receive Date: 20110621
  Receipt Date: 20110621
  Transmission Date: 20111010
  Serious: Yes (Other)
  Sender: FDA-Public Use
  Company Number: None

PATIENT
  Age: 31 Year
  Sex: Female
  Weight: 77.1115 kg

DRUGS (1)
  1. BENADRYL [Suspect]
     Indication: HYPERSENSITIVITY

REACTIONS (6)
  - SYNCOPE [None]
  - VERTIGO [None]
  - EPISTAXIS [None]
  - ABNORMAL DREAMS [None]
  - HEAD INJURY [None]
  - LIP HAEMORRHAGE [None]
